FAERS Safety Report 6186434-6 (Version None)
Quarter: 2009Q2

REPORT INFORMATION
  Report Type: 
  Country: None (occurrence: None)
  Receive Date: 20090511
  Receipt Date: 20090427
  Transmission Date: 20091009
  Serious: Yes (Hospitalization)
  Sender: FDA-Public Use
  Company Number: AR-AMGEN-US344398

PATIENT
  Sex: Female

DRUGS (7)
  1. ENBREL [Suspect]
     Indication: RHEUMATOID ARTHRITIS
     Route: 058
     Dates: start: 20040407, end: 20090305
  2. ATENOLOL [Concomitant]
     Indication: HYPERTENSION
     Route: 048
  3. ALENDRONATE SODIUM [Concomitant]
     Dosage: UNKNOWN
     Route: 065
  4. CALCIUM [Concomitant]
     Route: 048
  5. METHOTREXATE [Concomitant]
     Dosage: UNKNOWN
     Route: 065
  6. ENALAPRIL MALEATE [Concomitant]
     Indication: HYPERTENSION
     Route: 048
  7. FOLIC ACID [Concomitant]
     Route: 048

REACTIONS (4)
  - ARTHRITIS BACTERIAL [None]
  - ASTHENIA [None]
  - DEHYDRATION [None]
  - MALAISE [None]
